FAERS Safety Report 17430346 (Version 1)
Quarter: 2020Q1

REPORT INFORMATION
  Report Type: Spontaneous
  Country: US (occurrence: US)
  Receive Date: 20200215
  Receipt Date: 20200215
  Transmission Date: 20200409
  Serious: Yes (Other)
  Sender: FDA-Public Use
  Company Number: None

PATIENT
  Age: 42 Year
  Sex: Female
  Weight: 61.65 kg

DRUGS (10)
  1. MULTIVITAMIN [Concomitant]
     Active Substance: VITAMINS
  2. VITAMIN B12 [Concomitant]
     Active Substance: CYANOCOBALAMIN
  3. FISH OIL [Concomitant]
     Active Substance: FISH OIL
  4. CEFDINIR. [Concomitant]
     Active Substance: CEFDINIR
  5. CALCIUM [Concomitant]
     Active Substance: CALCIUM
  6. LYSINE [Concomitant]
     Active Substance: LYSINE
  7. CIPROFLOXACIN 500 MG TABLETS [Suspect]
     Active Substance: CIPROFLOXACIN
     Indication: SKIN INFECTION
     Dosage: ?          QUANTITY:1 TABLET(S);?
     Route: 048
     Dates: start: 20200208, end: 20200213
  8. GLUCOSAMINE/CHONDROITIN [Concomitant]
  9. FOLATE [Concomitant]
     Active Substance: FOLATE SODIUM
  10. VITAMIN C [Concomitant]
     Active Substance: ASCORBIC ACID

REACTIONS (4)
  - Limb immobilisation [None]
  - Tendonitis [None]
  - Therapy cessation [None]
  - Arthralgia [None]

NARRATIVE: CASE EVENT DATE: 20200214
